FAERS Safety Report 7381577 (Version 2)
Quarter: 2013Q2

REPORT INFORMATION
  Report Type: Spontaneous
  Country: JP (occurrence: None)
  Receive Date: 20100430
  Receipt Date: 20130619
  Transmission Date: 20140414
  Serious: Yes (Life-Threatening)
  Sender: FDA-Public Use
  Company Number: 2010JP002558

PATIENT
  Age: 22 Year
  Sex: Female

DRUGS (18)
  1. PROGRAF [Suspect]
     Indication: LUPUS NEPHRITIS
     Dosage: 3 MG, UID/QD, ORAL
     Route: 048
     Dates: start: 20070809, end: 20080803
  2. PREDNISOLONE [Concomitant]
  3. PREDNISOLONE [Concomitant]
  4. PREDNISOLONE [Concomitant]
  5. PREDNISOLONE [Concomitant]
  6. PREDNISOLONE [Concomitant]
  7. PREDNISOLONE [Concomitant]
  8. PREDNISOLONE [Concomitant]
  9. PREDNISOLONE [Concomitant]
  10. PREDNISOLONE [Concomitant]
  11. PREDNISOLONE [Concomitant]
  12. PREDNISOLONE (PREDNISOLONE) PER ORAL NOS [Concomitant]
  13. PREDNISOLONE (PREDNISOLONE) PER ORAL NOS [Concomitant]
  14. BUFFER/00002701/ (ACETYLSALICYLIC ACID) [Concomitant]
  15. THYRADIN S (LEVOTHYROXINE SODIUM) PER ORAL NOS [Concomitant]
  16. BENET (RISEDRONATE SODIUM) PER ORAL NOS [Concomitant]
  17. ONEALFA (ALFACALCIDOL) PER ORAL NOS [Concomitant]
  18. PROPIVERINE HYDROCHLORIDE [Suspect]

REACTIONS (3)
  - CEREBRAL INFARCTION [None]
  - SYSTEMIC LUPUS ERYTHEMATOSUS [None]
  - CONDITION AGGRAVATED [None]
